FAERS Safety Report 17517465 (Version 1)
Quarter: 2020Q1

REPORT INFORMATION
  Report Type: Spontaneous
  Country: US (occurrence: US)
  Receive Date: 20200309
  Receipt Date: 20200309
  Transmission Date: 20200409
  Serious: No
  Sender: FDA-Public Use
  Company Number: US-SA-2020SA060605

PATIENT
  Age: 77 Year
  Sex: Male

DRUGS (2)
  1. REPATHA [Concomitant]
     Active Substance: EVOLOCUMAB
     Dosage: 140 MG
  2. PRALUENT [Suspect]
     Active Substance: ALIROCUMAB
     Indication: BLOOD CHOLESTEROL INCREASED
     Dosage: 75 MG, QOW
     Dates: start: 20200101, end: 20200302

REACTIONS (4)
  - Headache [Unknown]
  - Pruritus [Unknown]
  - Throat irritation [Unknown]
  - Flank pain [Unknown]

NARRATIVE: CASE EVENT DATE: 2020
